FAERS Safety Report 18585688 (Version 1)
Quarter: 2020Q4

REPORT INFORMATION
  Report Type: Spontaneous
  Country: US (occurrence: US)
  Receive Date: 20201203
  Receipt Date: 20201203
  Transmission Date: 20210114
  Serious: Yes (Hospitalization)
  Sender: FDA-Public Use
  Company Number: None

PATIENT
  Age: 71 Year
  Sex: Female

DRUGS (3)
  1. TEMOZOLOMIDE 250MG [Suspect]
     Active Substance: TEMOZOLOMIDE
     Indication: BRAIN NEOPLASM MALIGNANT
     Dosage: ?          OTHER FREQUENCY:QD X 5DAYS;?
     Route: 048
     Dates: start: 20200720
  2. IBUPROFEN. [Suspect]
     Active Substance: IBUPROFEN
  3. LEVETIRACETA [Suspect]
     Active Substance: LEVETIRACETAM

REACTIONS (1)
  - Seizure [None]

NARRATIVE: CASE EVENT DATE: 20201130
